FAERS Safety Report 14945198 (Version 3)
Quarter: 2018Q3

REPORT INFORMATION
  Report Type: Spontaneous
  Country: US (occurrence: US)
  Receive Date: 20180529
  Receipt Date: 20180831
  Transmission Date: 20181010
  Serious: Yes (Hospitalization, Other)
  Sender: FDA-Public Use
  Company Number: US-ASTRAZENECA-2018SE68479

PATIENT
  Age: 51 Year
  Sex: Male
  Weight: 80.7 kg

DRUGS (7)
  1. HYDROCODONE [Concomitant]
     Active Substance: HYDROCODONE
     Indication: PAIN
     Dosage: AS REQUIRED
     Route: 048
     Dates: start: 2012
  2. PROAIR HFA [Concomitant]
     Active Substance: ALBUTEROL SULFATE
     Route: 055
     Dates: start: 2011
  3. AMLODIPINE [Concomitant]
     Active Substance: AMLODIPINE BESYLATE
     Indication: BLOOD PRESSURE MEASUREMENT
     Route: 048
     Dates: start: 2016
  4. HCTZ [Concomitant]
     Active Substance: HYDROCHLOROTHIAZIDE
     Indication: BLOOD PRESSURE MEASUREMENT
     Route: 065
     Dates: start: 2011
  5. FLONASE [Concomitant]
     Active Substance: FLUTICASONE PROPIONATE
     Indication: MULTIPLE ALLERGIES
     Route: 065
  6. LISINOPRIL. [Suspect]
     Active Substance: LISINOPRIL
     Indication: BLOOD PRESSURE MEASUREMENT
     Dosage: DAILY
     Route: 048
     Dates: start: 2010
  7. SYMBICORT [Suspect]
     Active Substance: BUDESONIDE\FORMOTEROL FUMARATE DIHYDRATE
     Indication: ASTHMA
     Dosage: 160/4.5, 2 PUFFS IN THE MORNING AND 2 PUFFS AT NIGHT
     Route: 055

REACTIONS (26)
  - Multiple injuries [Unknown]
  - Musculoskeletal chest pain [Unknown]
  - Weight fluctuation [Unknown]
  - Throat irritation [Recovering/Resolving]
  - Drug hypersensitivity [Unknown]
  - Hypoaesthesia [Unknown]
  - Headache [Unknown]
  - Product use issue [Unknown]
  - Accident at work [Unknown]
  - Limb crushing injury [Unknown]
  - Blood pressure increased [Unknown]
  - Insomnia [Unknown]
  - Blood cholesterol increased [Unknown]
  - Back pain [Unknown]
  - Off label use [Unknown]
  - Dyspnoea [Unknown]
  - Rhinorrhoea [Unknown]
  - Device malfunction [Unknown]
  - Cough [Recovering/Resolving]
  - Neuralgia [Unknown]
  - Dysphonia [Unknown]
  - Lacrimation increased [Unknown]
  - Pain [Unknown]
  - Memory impairment [Unknown]
  - Drug dose omission [Unknown]
  - Intentional product misuse [Unknown]

NARRATIVE: CASE EVENT DATE: 2010
